FAERS Safety Report 20711795 (Version 1)
Quarter: 2022Q2

REPORT INFORMATION
  Report Type: Spontaneous
  Country: CH (occurrence: CH)
  Receive Date: 20220414
  Receipt Date: 20220414
  Transmission Date: 20220720
  Serious: Yes (Other)
  Sender: FDA-Public Use
  Company Number: CH-NAPPMUNDI-GBR-2022-0097029

PATIENT
  Sex: Female
  Weight: 76 kg

DRUGS (6)
  1. OXYCONTIN [Suspect]
     Active Substance: OXYCODONE HYDROCHLORIDE
     Indication: Accident
     Dosage: 105 MILLIGRAM
     Route: 048
     Dates: start: 2005
  2. OXYCODONE HYDROCHLORIDE [Suspect]
     Active Substance: OXYCODONE HYDROCHLORIDE
     Indication: Accident
     Dosage: 180 MILLIGRAM
     Route: 048
     Dates: start: 2005
  3. MODERNA COVID-19 VACCINE [Suspect]
     Active Substance: ELASOMERAN
     Indication: Product used for unknown indication
     Dosage: UNK, TERZA DOSE BOOSTER DI VACCINO:CATEGORIA 3C
     Route: 030
     Dates: start: 20210904, end: 20210904
  4. TIROSINT [Concomitant]
     Active Substance: LEVOTHYROXINE SODIUM
     Indication: Autoimmune thyroiditis
     Dosage: 100 MICROGRAM
     Route: 065
     Dates: start: 2015
  5. Covid-19 vaccine [Concomitant]
     Indication: Product used for unknown indication
     Dosage: UNK, SECONDA DOSE DI VACCINO: DATA E TIPOLOGIA NON NOTA
     Route: 030
     Dates: start: 2021, end: 2021
  6. Covid-19 vaccine [Concomitant]
     Dosage: UNK, PRIMA DOSE DI VACCINO: DATA E TIPOLOGIA NON NOTA
     Route: 030
     Dates: start: 2021, end: 2021

REACTIONS (6)
  - Pyrexia [Not Recovered/Not Resolved]
  - Musculoskeletal pain [Not Recovered/Not Resolved]
  - Muscular weakness [Not Recovered/Not Resolved]
  - Vaccination site reaction [Not Recovered/Not Resolved]
  - Headache [Not Recovered/Not Resolved]
  - Paraesthesia [Not Recovered/Not Resolved]

NARRATIVE: CASE EVENT DATE: 20210901
